FAERS Safety Report 4878150-5 (Version None)
Quarter: 2005Q4

REPORT INFORMATION
  Report Type: 
  Country: None (occurrence: None)
  Receive Date: 20051212
  Receipt Date: 20051028
  Transmission Date: 20060501
  Serious: Yes (Hospitalization)
  Sender: FDA-Public Use
  Company Number: 2005-02260

PATIENT
  Age: 57 Year
  Sex: Female
  Weight: 63.8 kg

DRUGS (14)
  1. VELCADE [Suspect]
     Indication: MULTIPLE MYELOMA
     Dosage: 1.30 MG/M2, 2/WEEK, INTRAVENOUS
     Route: 042
     Dates: start: 20050628, end: 20050916
  2. SCIO-469() [Suspect]
     Indication: MULTIPLE MYELOMA
     Dosage: 60.00 MG, TID, ORAL
     Route: 048
     Dates: start: 20050511, end: 20050920
  3. BECOSYM FORTE (PYRIDOXINE HYDROCHLORIDE, RIBOFLAVIN, THIAMINE HYDROCHL [Concomitant]
  4. GABAPENTIN [Concomitant]
  5. ESOMEPRAZOLE (ESOMEPRAZOLE) [Concomitant]
  6. PREDNISONE [Concomitant]
  7. PYRIDOXINE HCL [Concomitant]
  8. ACETYLCARNITINE (ACETYLCARNITINE) [Concomitant]
  9. THIOCTIC ACID (THIOCTIC ACID) [Concomitant]
  10. FENTANYL [Concomitant]
  11. FOLIC ACID [Concomitant]
  12. LEVOGLUTAMIDE (LEVOGLUTAMIDE) [Concomitant]
  13. INSULIN GLARGINE (INSULIN GLARGINE) [Concomitant]
  14. MAGNESIUM GLUCONATE (MAGNESIUM GLUCONATE) [Concomitant]

REACTIONS (5)
  - DIARRHOEA [None]
  - DIZZINESS [None]
  - FALL [None]
  - JOINT INJURY [None]
  - ORTHOSTATIC HYPOTENSION [None]
